FAERS Safety Report 11860568 (Version 3)
Quarter: 2017Q1

REPORT INFORMATION
  Report Type: Spontaneous
  Country: US (occurrence: US)
  Receive Date: 20151222
  Receipt Date: 20170216
  Transmission Date: 20170428
  Serious: Yes (Hospitalization, Other)
  Sender: FDA-Public Use
  Company Number: US-ELI_LILLY_AND_COMPANY-US201512006199

PATIENT
  Weight: 78 kg

DRUGS (3)
  1. LYRICA [Concomitant]
     Active Substance: PREGABALIN
     Dosage: 100 MG, TID
     Route: 065
  2. CYMBALTA [Suspect]
     Active Substance: DULOXETINE HYDROCHLORIDE
     Indication: PRODUCT USED FOR UNKNOWN INDICATION
     Dosage: 60 MG, BID
     Route: 048
     Dates: start: 20130521
  3. CYCLOBENZAPRINE HCL [Concomitant]
     Active Substance: CYCLOBENZAPRINE HYDROCHLORIDE
     Dosage: 10 MG, UNKNOWN
     Route: 065
     Dates: start: 20130521

REACTIONS (25)
  - Dizziness [Unknown]
  - Paraesthesia [Unknown]
  - Tinnitus [Unknown]
  - Headache [Unknown]
  - Vomiting [Unknown]
  - Nightmare [Unknown]
  - Irritability [Unknown]
  - Insomnia [Unknown]
  - Anxiety [Unknown]
  - Vertigo [Unknown]
  - Affective disorder [Unknown]
  - Agitation [Unknown]
  - Fatigue [Unknown]
  - Hyperhidrosis [Unknown]
  - Drug withdrawal syndrome [Unknown]
  - Lethargy [Unknown]
  - Sensory disturbance [Unknown]
  - Nausea [Unknown]
  - Diarrhoea [Unknown]
  - Hypomania [Unknown]
  - Seizure [Unknown]
  - Confusional state [Unknown]
  - Suicidal ideation [Unknown]
  - Affect lability [Unknown]
  - Amnesia [Unknown]
